FAERS Safety Report 5144218-1 (Version None)
Quarter: 2006Q4

REPORT INFORMATION
  Report Type: 
  Country: None (occurrence: None)
  Receive Date: 20061106
  Receipt Date: 20061024
  Transmission Date: 20070319
  Serious: Yes (Other)
  Sender: FDA-Public Use
  Company Number: HR-ROCHE-468332

PATIENT
  Age: 9 Year
  Sex: Female

DRUGS (1)
  1. CEFTRIAXONE SODIUM [Suspect]
     Indication: BACTERIAL INFECTION
     Route: 040

REACTIONS (2)
  - BILIARY COLIC [None]
  - CHOLELITHIASIS [None]
